FAERS Safety Report 5115257-1 (Version None)
Quarter: 2006Q3

REPORT INFORMATION
  Report Type: 
  Country: None (occurrence: None)
  Receive Date: 20060926
  Receipt Date: 20060922
  Transmission Date: 20061208
  Serious: Yes (Other)
  Sender: FDA-Public Use
  Company Number: US-GLAXOSMITHKLINE-A0621100A

PATIENT
  Age: 71 Year
  Sex: Female

DRUGS (3)
  1. CITRUCEL CHOCOLATE FIBERSHAKE [Suspect]
     Indication: GASTROINTESTINAL DISORDER
     Route: 048
     Dates: start: 20060901, end: 20060920
  2. FOSAMAX [Concomitant]
  3. PIROXICAM [Concomitant]

REACTIONS (2)
  - PHARMACEUTICAL PRODUCT COMPLAINT [None]
  - RECTAL HAEMORRHAGE [None]
